FAERS Safety Report 7319377-2 (Version None)
Quarter: 2011Q1

REPORT INFORMATION
  Report Type: 
  Country: None (occurrence: None)
  Receive Date: 20110228
  Receipt Date: 20100224
  Transmission Date: 20110831
  Serious: Yes (Hospitalization)
  Sender: FDA-Public Use
  Company Number: A0846266A

PATIENT
  Sex: Male

DRUGS (3)
  1. ANTI-PSYCHOTIC MEDICATION [Concomitant]
  2. LAMICTAL [Suspect]
     Indication: BIPOLAR DISORDER
     Route: 048
     Dates: start: 20091101
  3. STRATTERA [Concomitant]

REACTIONS (1)
  - RASH [None]
